FAERS Safety Report 11726823 (Version 5)
Quarter: 2017Q1

REPORT INFORMATION
  Report Type: Report from Study
  Country: None (occurrence: BR)
  Receive Date: 20151112
  Receipt Date: 20170301
  Transmission Date: 20170428
  Serious: Yes (Disabling, Other)
  Sender: FDA-Public Use
  Company Number: BR-ABBVIE-15K-020-1442714-00

PATIENT
  Sex: Female
  Weight: 74 kg

DRUGS (10)
  1. ARAVA [Concomitant]
     Active Substance: LEFLUNOMIDE
     Indication: RHEUMATOID ARTHRITIS
     Route: 048
     Dates: start: 2002
  2. VITAMIN D [Concomitant]
     Active Substance: CHOLECALCIFEROL
     Indication: VITAMIN SUPPLEMENTATION
     Route: 048
     Dates: start: 20170201
  3. ALENDRONATE [Concomitant]
     Active Substance: ALENDRONATE SODIUM
     Indication: PRODUCT USED FOR UNKNOWN INDICATION
     Dates: end: 2014
  4. HUMIRA [Suspect]
     Active Substance: ADALIMUMAB
     Indication: RHEUMATOID ARTHRITIS
     Route: 058
     Dates: start: 20130805, end: 201608
  5. VITAMIN D [Concomitant]
     Active Substance: CHOLECALCIFEROL
     Indication: RHEUMATOID ARTHRITIS
     Route: 048
     Dates: start: 2007, end: 20170201
  6. CALCIUM [Concomitant]
     Active Substance: CALCIUM
     Indication: RHEUMATOID ARTHRITIS
     Route: 048
     Dates: start: 2017, end: 20170201
  7. CALCIUM [Concomitant]
     Active Substance: CALCIUM
     Indication: BONE DISORDER
     Route: 048
     Dates: start: 20170201
  8. GLUCOSAMINE [Concomitant]
     Active Substance: GLUCOSAMINE
     Indication: RHEUMATOID ARTHRITIS
     Route: 048
  9. CHONDROITIN [Concomitant]
     Active Substance: CHONDROITIN
     Indication: RHEUMATOID ARTHRITIS
     Route: 048
  10. VENLAFAXINE HYDROCHLORIDE. [Concomitant]
     Active Substance: VENLAFAXINE HYDROCHLORIDE
     Indication: FIBROMYALGIA

REACTIONS (15)
  - Weight increased [Unknown]
  - Tendon disorder [Unknown]
  - Bedridden [Unknown]
  - Tooth infection [Unknown]
  - Femur fracture [Unknown]
  - Tooth fracture [Unknown]
  - Foot fracture [Unknown]
  - Peripheral swelling [Unknown]
  - Femur fracture [Recovering/Resolving]
  - Fracture pain [Not Recovered/Not Resolved]
  - Gait disturbance [Unknown]
  - Fall [Unknown]
  - Gait disturbance [Unknown]
  - Gait disturbance [Unknown]
  - Osteoporosis [Unknown]

NARRATIVE: CASE EVENT DATE: 2014
